FAERS Safety Report 16141669 (Version 2)
Quarter: 2019Q2

REPORT INFORMATION
  Report Type: Report from Study
  Country: US (occurrence: US)
  Receive Date: 20190401
  Receipt Date: 20190501
  Transmission Date: 20190711
  Serious: Yes (Death)
  Sender: FDA-Public Use
  Company Number: US-CLOVIS ONCOLOGY-CLO-2019-000484

PATIENT
  Sex: Female

DRUGS (2)
  1. RUBRACA [Suspect]
     Active Substance: RUCAPARIB CAMSYLATE
     Dosage: 600 MG, BID
     Route: 048
     Dates: start: 20190208, end: 2019
  2. RUBRACA [Suspect]
     Active Substance: RUCAPARIB CAMSYLATE
     Indication: OVARIAN CANCER
     Dosage: 600 MG, BID
     Route: 048
     Dates: start: 20190207, end: 2019

REACTIONS (15)
  - Oedema peripheral [Unknown]
  - Fatigue [Unknown]
  - Death [Fatal]
  - Emotional distress [Unknown]
  - Psoriasis [Unknown]
  - Performance status decreased [Unknown]
  - Hypomagnesaemia [Unknown]
  - Skin disorder [Unknown]
  - Abdominal discomfort [Unknown]
  - Asthenia [Unknown]
  - Heart rate increased [Unknown]
  - Abdominal distension [Unknown]
  - Diarrhoea [Recovering/Resolving]
  - Malignant neoplasm progression [Unknown]
  - Nausea [Not Recovered/Not Resolved]

NARRATIVE: CASE EVENT DATE: 2019
